FAERS Safety Report 7790262-5 (Version None)
Quarter: 2011Q3

REPORT INFORMATION
  Report Type: 
  Country: None (occurrence: None)
  Receive Date: 20110930
  Receipt Date: 20101222
  Transmission Date: 20111222
  Serious: Yes (Other)
  Sender: FDA-Public Use
  Company Number: US-BAYER-2010-009162

PATIENT
  Age: 35 Year
  Sex: Female
  Weight: 82.993 kg

DRUGS (11)
  1. MULTI-VITAMIN [Concomitant]
     Dosage: UNK UNK, QD
     Route: 048
  2. WARFARIN SODIUM [Concomitant]
     Dosage: 5 MG, UNK
     Route: 048
     Dates: start: 20081225, end: 20090624
  3. DROSPIRENONE AND ETHINYL ESTRADIOL [Suspect]
     Indication: CONTRACEPTION
     Dosage: UNK
     Dates: start: 20081101
  4. FLAXSEED OIL [Concomitant]
  5. CARISOPRODOL [Concomitant]
     Dosage: 350 MG, UNK
     Route: 048
     Dates: start: 20090416
  6. LORTAB [Concomitant]
     Indication: PAIN
     Dosage: UNK UNK, BID
     Dates: start: 20081201
  7. YASMIN [Suspect]
     Indication: CONTRACEPTION
     Dosage: UNK
     Dates: start: 20040101, end: 20070801
  8. GLUCOSAMINE CHONDROITIN COMPLEX [Concomitant]
     Route: 048
  9. DICLOFENAC SODIUM [Concomitant]
     Indication: TENDON INJURY
     Dosage: UNK
     Dates: start: 20080402
  10. IBUPROFEN [Concomitant]
     Dosage: UNK
     Dates: start: 20010101
  11. CELEBREX [Concomitant]
     Dosage: 200 MG, UNK
     Route: 048
     Dates: start: 20090225

REACTIONS (4)
  - DEEP VEIN THROMBOSIS [None]
  - PAIN [None]
  - INJURY [None]
  - EMOTIONAL DISTRESS [None]
